FAERS Safety Report 16228104 (Version 1)
Quarter: 2019Q2

REPORT INFORMATION
  Report Type: Spontaneous
  Country: US (occurrence: US)
  Receive Date: 20190318
  Receipt Date: 20190318
  Transmission Date: 20190711
  Serious: No
  Sender: FDA-Public Use
  Company Number: None

PATIENT
  Age: 16 Year
  Sex: Male

DRUGS (1)
  1. MYCOPHENOLATE MOFETIL TABLET [Suspect]
     Active Substance: MYCOPHENOLATE MOFETIL
     Dates: start: 20190104

REACTIONS (3)
  - Depression [None]
  - Agitation [None]
  - Apathy [None]

NARRATIVE: CASE EVENT DATE: 20190204
